FAERS Safety Report 4453001-1 (Version None)
Quarter: 2004Q3

REPORT INFORMATION
  Report Type: 
  Country: None (occurrence: None)
  Receive Date: 20040916
  Receipt Date: 20040908
  Transmission Date: 20050211
  Serious: Yes (Death)
  Sender: FDA-Public Use
  Company Number: 163-20785-04090213

PATIENT
  Age: 59 Year
  Sex: Male

DRUGS (1)
  1. THALOMID [Suspect]
     Indication: MULTIPLE MYELOMA
     Dosage: 250 MG, QD, ORAL
     Route: 048
     Dates: start: 20040729, end: 20040811

REACTIONS (3)
  - DISEASE PROGRESSION [None]
  - MULTIPLE MYELOMA [None]
  - RESPIRATORY FAILURE [None]
